FAERS Safety Report 24077405 (Version 1)
Quarter: 2024Q3

REPORT INFORMATION
  Report Type: Spontaneous
  Country: US (occurrence: US)
  Receive Date: 20240711
  Receipt Date: 20240711
  Transmission Date: 20241016
  Serious: Yes (Disabling, Other)
  Sender: UCB
  Company Number: US-UCBSA-2024034927

PATIENT
  Sex: Male

DRUGS (1)
  1. CIMZIA [Suspect]
     Active Substance: CERTOLIZUMAB PEGOL
     Indication: Product used for unknown indication
     Dosage: 400 MILLIGRAM OTHER
     Route: 042

REACTIONS (2)
  - Blindness unilateral [Recovering/Resolving]
  - Off label use [Unknown]
